FAERS Safety Report 18398418 (Version 1)
Quarter: 2020Q4

REPORT INFORMATION
  Report Type: Report from Study
  Country: US (occurrence: US)
  Receive Date: 20201019
  Receipt Date: 20201019
  Transmission Date: 20210114
  Serious: Yes (Other)
  Sender: FDA-Public Use
  Company Number: US-ASTELLAS-2020US027800

PATIENT
  Sex: Male

DRUGS (1)
  1. ENZALUTAMIDE [Suspect]
     Active Substance: ENZALUTAMIDE
     Indication: PROSTATE CANCER
     Route: 048
     Dates: start: 20200528

REACTIONS (7)
  - Bone pain [Unknown]
  - Hot flush [Unknown]
  - Malaise [Unknown]
  - Weight decreased [Unknown]
  - Panic attack [Unknown]
  - Skin exfoliation [Not Recovered/Not Resolved]
  - Dysphagia [Not Recovered/Not Resolved]
